FAERS Safety Report 12074962 (Version 1)
Quarter: 2016Q1

REPORT INFORMATION
  Report Type: Spontaneous
  Country: TR (occurrence: TR)
  Receive Date: 20160212
  Receipt Date: 20160212
  Transmission Date: 20160526
  Serious: Yes (Hospitalization)
  Sender: FDA-Public Use
  Company Number: TR-GLAXOSMITHKLINE-TR2016GSK019727

PATIENT
  Age: 59 Year
  Sex: Female

DRUGS (3)
  1. GLIMEPRID [Concomitant]
     Active Substance: GLIMEPIRIDE
     Dosage: 2 MG, UNK
  2. METFORMIN [Concomitant]
     Active Substance: METFORMIN HYDROCHLORIDE
     Dosage: 1000 MG, BID
  3. ACITRETIN. [Suspect]
     Active Substance: ACITRETIN
     Dosage: 25 MG, QD

REACTIONS (5)
  - Hyperhidrosis [Unknown]
  - Asthenia [Unknown]
  - Hypoglycaemia [Recovering/Resolving]
  - Blood insulin decreased [Unknown]
  - Confusional state [Unknown]
